FAERS Safety Report 20372486 (Version 3)
Quarter: 2022Q4

REPORT INFORMATION
  Report Type: Report from Study
  Country: US (occurrence: US)
  Receive Date: 20220125
  Receipt Date: 20221213
  Transmission Date: 20230113
  Serious: Yes (Hospitalization)
  Sender: FDA-Public Use
  Company Number: US-ABBVIE-21K-163-3970746-00

PATIENT
  Age: 66 Year
  Sex: Male

DRUGS (5)
  1. VENCLEXTA [Suspect]
     Active Substance: VENETOCLAX
     Indication: Acute myeloid leukaemia
     Route: 048
     Dates: start: 20190619, end: 20190711
  2. VENCLEXTA [Suspect]
     Active Substance: VENETOCLAX
     Indication: Acute myeloid leukaemia
     Route: 048
     Dates: start: 20190930
  3. VENCLEXTA [Suspect]
     Active Substance: VENETOCLAX
     Indication: Acute myeloid leukaemia
     Dosage: TAKE 2 TABLETS BY MOUTH DAILY
     Route: 048
  4. VENCLEXTA [Suspect]
     Active Substance: VENETOCLAX
     Indication: Acute myeloid leukaemia
     Dosage: TIME INTERVAL: 0.33333333 DAYS: TAKE 3 TABLETS BY MOUTH DAILY
     Route: 048
     Dates: start: 20220119
  5. VENCLEXTA [Suspect]
     Active Substance: VENETOCLAX
     Indication: Acute myeloid leukaemia
     Dosage: TAKE 3 TABLETS BY MOUTH DAILY
     Route: 048

REACTIONS (8)
  - Pneumonia [Recovered/Resolved]
  - Pyrexia [Recovered/Resolved]
  - Toothache [Recovered/Resolved]
  - Abscess oral [Recovered/Resolved]
  - Off label use [Unknown]
  - Nausea [Unknown]
  - Infection susceptibility increased [Unknown]
  - Mouth ulceration [Unknown]

NARRATIVE: CASE EVENT DATE: 20190701
